FAERS Safety Report 5376348-3 (Version None)
Quarter: 2007Q3

REPORT INFORMATION
  Report Type: 
  Country: None (occurrence: None)
  Receive Date: 20070702
  Receipt Date: 20070620
  Transmission Date: 20080115
  Serious: Yes (Other)
  Sender: FDA-Public Use
  Company Number: US-PFIZER INC-2007035066

PATIENT
  Sex: Female
  Weight: 84.09 kg

DRUGS (7)
  1. CHANTIX [Suspect]
     Indication: SMOKING CESSATION THERAPY
     Route: 048
  2. TRAZODONE HCL [Concomitant]
  3. RISPERDAL [Concomitant]
  4. TONOCARD [Concomitant]
  5. BUSPAR [Concomitant]
  6. VITAMIN E [Concomitant]
     Dosage: DAILY DOSE:400I.U.
  7. SERTRALINE [Concomitant]

REACTIONS (9)
  - ABNORMAL DREAMS [None]
  - DIZZINESS [None]
  - DYSGEUSIA [None]
  - GLOSSODYNIA [None]
  - HALLUCINATION, AUDITORY [None]
  - HEAD DISCOMFORT [None]
  - HEADACHE [None]
  - MALAISE [None]
  - VISION BLURRED [None]
